FAERS Safety Report 17505747 (Version 2)
Quarter: 2020Q1

REPORT INFORMATION
  Report Type: Spontaneous
  Country: DE (occurrence: DE)
  Receive Date: 20200306
  Receipt Date: 20200319
  Transmission Date: 20200409
  Serious: Yes (Other)
  Sender: FDA-Public Use
  Company Number: DE-TEVA-2020-DE-1193160

PATIENT
  Age: 33 Year
  Sex: Male

DRUGS (3)
  1. URBASON [Concomitant]
     Active Substance: METHYLPREDNISOLONE
     Indication: MULTIPLE SCLEROSIS RELAPSE
     Dosage: 1000 MILLIGRAM DAILY;
     Route: 042
     Dates: start: 20191001, end: 20191105
  2. COPAXONE [Suspect]
     Active Substance: GLATIRAMER ACETATE
     Indication: MULTIPLE SCLEROSIS
     Dates: start: 20191028, end: 202001
  3. URBASON [Concomitant]
     Active Substance: METHYLPREDNISOLONE
     Dosage: 1000 UNKNOWN DAILY;
     Route: 042
     Dates: start: 20191121, end: 20191123

REACTIONS (1)
  - Drug-induced liver injury [Not Recovered/Not Resolved]

NARRATIVE: CASE EVENT DATE: 20200117
